FAERS Safety Report 9519279 (Version 1)
Quarter: 2013Q3

REPORT INFORMATION
  Report Type: Spontaneous
  Country: US (occurrence: None)
  Receive Date: 20130911
  Receipt Date: 20130911
  Transmission Date: 20140515
  Serious: Yes (Other)
  Sender: FDA-Public Use
  Company Number: None

PATIENT
  Sex: Female
  Weight: 65.41 kg

DRUGS (1)
  1. LAMOTRIGINE [Suspect]
     Indication: AFFECTIVE DISORDER
     Dosage: 1 TAB ?8/16  - 8/21
     Route: 048

REACTIONS (7)
  - Panic attack [None]
  - Amnesia [None]
  - Headache [None]
  - Nausea [None]
  - Vertigo [None]
  - Feeling abnormal [None]
  - Balance disorder [None]
